FAERS Safety Report 20330613 (Version 1)
Quarter: 2022Q1

REPORT INFORMATION
  Report Type: Spontaneous
  Country: EE (occurrence: EE)
  Receive Date: 20220113
  Receipt Date: 20220113
  Transmission Date: 20220423
  Serious: Yes (Other)
  Sender: FDA-Public Use
  Company Number: EE-NOVARTISPH-NVSC2021EE279053

PATIENT
  Age: 73 Year
  Sex: Female
  Weight: 85 kg

DRUGS (2)
  1. BEOVU [Suspect]
     Active Substance: BROLUCIZUMAB-DBLL
     Indication: Neovascular age-related macular degeneration
     Dosage: 0.05 ML, QMO
     Route: 047
     Dates: start: 202109
  2. BEOVU [Suspect]
     Active Substance: BROLUCIZUMAB-DBLL
     Dosage: 0.05 ML, QMO
     Route: 047
     Dates: start: 20211104

REACTIONS (9)
  - Uveitis [Not Recovered/Not Resolved]
  - Retinal degeneration [Unknown]
  - Retinal exudates [Unknown]
  - Papilloedema [Unknown]
  - Visual impairment [Unknown]
  - Retinal oedema [Unknown]
  - Eye complication associated with device [Unknown]
  - Corneal disorder [Unknown]
  - Vitreous floaters [Unknown]
